FAERS Safety Report 7159765-0 (Version None)
Quarter: 2010Q4

REPORT INFORMATION
  Report Type: 
  Country: None (occurrence: None)
  Receive Date: 20101214
  Receipt Date: 20100930
  Transmission Date: 20110411
  Serious: No
  Sender: FDA-Public Use
  Company Number: US-ASTRAZENECA-2010SE46195

PATIENT
  Sex: Male

DRUGS (6)
  1. CRESTOR [Suspect]
     Route: 048
  2. SEROQUEL [Suspect]
     Route: 048
     Dates: start: 20100927, end: 20100929
  3. SEROQUEL [Suspect]
     Route: 048
     Dates: start: 20100929
  4. UROXATROL [Concomitant]
  5. DIGOXIN [Concomitant]
  6. CARDIZEM [Concomitant]

REACTIONS (4)
  - HYPERTENSION [None]
  - TACHYCARDIA [None]
  - TACHYPHRENIA [None]
  - THERAPEUTIC RESPONSE UNEXPECTED [None]
